FAERS Safety Report 5861335-9 (Version None)
Quarter: 2008Q3

REPORT INFORMATION
  Report Type: 
  Country: None (occurrence: None)
  Receive Date: 20080827
  Receipt Date: 20080604
  Transmission Date: 20090109
  Serious: No
  Sender: FDA-Public Use
  Company Number: US-ABBOTT-08P-163-0448587-00

PATIENT
  Sex: Male
  Weight: 92.7 kg

DRUGS (8)
  1. NIASPAN [Suspect]
     Indication: BLOOD TRIGLYCERIDES INCREASED
     Route: 048
     Dates: start: 20080414, end: 20080421
  2. AMLODBENAZP/520 [Concomitant]
     Indication: HYPERTENSION
     Route: 048
  3. MULTI-VITAMIN [Concomitant]
     Indication: VITAMIN SUPPLEMENTATION
     Route: 048
  4. TOCOPHEROL CONCENTRATE CAP [Concomitant]
     Indication: VITAMIN SUPPLEMENTATION
     Route: 048
  5. METOPROLOL SUCCINATE [Concomitant]
     Indication: HYPERTENSION
     Dosage: 1 1/2 TAB AT BEDTIME
     Route: 048
  6. CLOPIDOGREL [Concomitant]
     Indication: DRUG USE FOR UNKNOWN INDICATION
     Route: 048
  7. SIMVASTATIN [Concomitant]
     Indication: DRUG USE FOR UNKNOWN INDICATION
     Dosage: 1 AT BEDTIME
     Route: 048
  8. LOTREL [Concomitant]
     Indication: HYPERTENSION
     Dosage: 5/20MG, 1 DAILY
     Route: 048

REACTIONS (2)
  - NAUSEA [None]
  - VOMITING [None]
